FAERS Safety Report 4366487-8 (Version None)
Quarter: 2004Q2

REPORT INFORMATION
  Report Type: 
  Country: None (occurrence: None)
  Receive Date: 20040527
  Receipt Date: 20040421
  Transmission Date: 20050107
  Serious: Yes (Other)
  Sender: FDA-Public Use
  Company Number: US-BRISTOL-MYERS SQUIBB COMPANY-12566584

PATIENT
  Age: 36 Year
  Sex: Female
  Weight: 88 kg

DRUGS (4)
  1. ERBITUX [Suspect]
     Indication: COLON CANCER METASTATIC
     Dosage: THIRD DOSE HELD ON 15-APR-2004 DUE TO EVENT.
     Route: 042
     Dates: start: 20040401, end: 20040401
  2. BENADRYL [Concomitant]
     Indication: PREMEDICATION
     Route: 041
     Dates: start: 20040401, end: 20040401
  3. DECADRON [Concomitant]
     Indication: PREMEDICATION
     Route: 041
     Dates: start: 20040401, end: 20040401
  4. KYTRIL [Concomitant]
     Indication: PREMEDICATION
     Route: 041
     Dates: start: 20040401, end: 20040401

REACTIONS (2)
  - PRURITUS [None]
  - RASH [None]
